FAERS Safety Report 20707995 (Version 1)
Quarter: 2022Q2

REPORT INFORMATION
  Report Type: Spontaneous
  Country: DK (occurrence: DK)
  Receive Date: 20220414
  Receipt Date: 20220414
  Transmission Date: 20220721
  Serious: Yes (Hospitalization, Other)
  Sender: FDA-Public Use
  Company Number: DK-Accord-260450

PATIENT
  Age: 60 Year
  Sex: Female

DRUGS (2)
  1. TACROLIMUS [Suspect]
     Active Substance: TACROLIMUS
     Indication: Chronic graft versus host disease in lung
     Dosage: ON SEVERAL OCCASIONS, BLOOD TACROLIMUS CONCENTRATIONS HAD EXCEEDED UPPER
  2. CLARITHROMYCIN [Concomitant]
     Active Substance: CLARITHROMYCIN
     Indication: Pneumonia

REACTIONS (4)
  - Tachycardia [Recovered/Resolved]
  - Neuropsychiatric symptoms [Recovered/Resolved]
  - Hypertension [Recovered/Resolved]
  - Off label use [Unknown]
